FAERS Safety Report 7600794-8 (Version None)
Quarter: 2011Q3

REPORT INFORMATION
  Report Type: 
  Country: None (occurrence: None)
  Receive Date: 20110711
  Receipt Date: 20110707
  Transmission Date: 20111222
  Serious: Yes (Other)
  Sender: FDA-Public Use
  Company Number: US-GLAXOSMITHKLINE-A0924172A

PATIENT
  Age: 60 Year
  Sex: Female

DRUGS (1)
  1. ALLI [Suspect]
     Indication: WEIGHT DECREASED
     Route: 048
     Dates: start: 20110101

REACTIONS (10)
  - DIARRHOEA [None]
  - PRODUCT QUALITY ISSUE [None]
  - ABDOMINAL PAIN UPPER [None]
  - PARAESTHESIA [None]
  - FINGER DEFORMITY [None]
  - JOINT LOCK [None]
  - VOMITING [None]
  - NAUSEA [None]
  - GASTROENTERITIS [None]
  - HYPOAESTHESIA [None]
